FAERS Safety Report 10077085 (Version 1)
Quarter: 2014Q2

REPORT INFORMATION
  Report Type: Spontaneous
  Country: CH (occurrence: CH)
  Receive Date: 20140414
  Receipt Date: 20140414
  Transmission Date: 20141212
  Serious: Yes (Hospitalization)
  Sender: FDA-Public Use
  Company Number: PHHY2014CH044437

PATIENT
  Age: 67 Year
  Sex: Male
  Weight: 80 kg

DRUGS (4)
  1. RASILAMLO [Suspect]
     Indication: HYPERTENSION
     Dosage: 1 DF (ALIS 300MG, AMLO 10MG) QD
     Route: 048
     Dates: start: 20120605, end: 20131118
  2. RASILAMLO [Suspect]
     Dosage: 1 DF (ALIS 300MG, AMLO 10MG) QD
     Route: 048
  3. NEBIVOLOL [Concomitant]
     Dosage: 5 MG, UNK
     Route: 048
     Dates: start: 201206
  4. ACETYLSALICYLIC ACID [Concomitant]
     Dosage: 100 MG, UNK
     Route: 048

REACTIONS (1)
  - Hypersensitivity vasculitis [Recovered/Resolved]
